FAERS Safety Report 22623274 (Version 9)
Quarter: 2025Q4

REPORT INFORMATION
  Report Type: Report from Study
  Country: EU (occurrence: EU)
  Receive Date: 20230621
  Receipt Date: 20251001
  Transmission Date: 20260118
  Serious: Yes (Other)
  Sender: Unknown Manufacturer
  Company Number: EU-MIRUM PHARMACEUTICALS, INC.-LT-MIR-23-00283

PATIENT

DRUGS (9)
  1. MARALIXIBAT CHLORIDE [Suspect]
     Active Substance: MARALIXIBAT CHLORIDE
     Indication: Alagille syndrome
     Dosage: 10 MILLIGRAM, QD
     Route: 048
     Dates: start: 20230627, end: 20230725
  2. MARALIXIBAT CHLORIDE [Suspect]
     Active Substance: MARALIXIBAT CHLORIDE
     Dosage: 380 UNK, UNK
     Route: 065
     Dates: start: 20221230, end: 20230601
  3. MARALIXIBAT CHLORIDE [Suspect]
     Active Substance: MARALIXIBAT CHLORIDE
     Dosage: 380 MICROGRAM/KILOGRAM, QD (10 MG X 1)
     Route: 048
     Dates: start: 20221206, end: 20221230
  4. MARALIXIBAT CHLORIDE [Suspect]
     Active Substance: MARALIXIBAT CHLORIDE
     Dosage: UNK
     Route: 048
     Dates: end: 20230530
  5. MARALIXIBAT CHLORIDE [Suspect]
     Active Substance: MARALIXIBAT CHLORIDE
     Dosage: UNK
     Route: 048
     Dates: end: 20240605
  6. DEKAS ESSENTIAL [Concomitant]
     Indication: Product used for unknown indication
     Dosage: 1 MILLILITER X 1 (1ML = VIT D3 IU (?G) 2000 (50))
     Route: 065
  7. PANCREATIN [Concomitant]
     Active Substance: PANCRELIPASE
     Indication: Product used for unknown indication
     Dosage: 25000 INTERNATIONAL UNIT, TID WITH FOOD (2 WKS)
     Route: 065
  8. POLYETHYLENE GLYCOL 4000 [Concomitant]
     Active Substance: POLYETHYLENE GLYCOL 4000
     Indication: Product used for unknown indication
     Dosage: 10-30G, QD FOR 6 MONTHS
     Route: 065
  9. FISH OIL [Concomitant]
     Active Substance: FISH OIL
     Indication: Product used for unknown indication
     Dosage: 10 MILLILITER, QD
     Route: 065

REACTIONS (5)
  - Hepatic enzyme increased [Not Recovered/Not Resolved]
  - Varicella [Recovered/Resolved]
  - COVID-19 [Recovered/Resolved]
  - Sinusitis [Recovered/Resolved]
  - Decreased appetite [Recovered/Resolved]

NARRATIVE: CASE EVENT DATE: 20221230
